FAERS Safety Report 10060725 (Version 1)
Quarter: 2014Q2

REPORT INFORMATION
  Report Type: Spontaneous
  Country: US (occurrence: US)
  Receive Date: 20140404
  Receipt Date: 20140404
  Transmission Date: 20141212
  Serious: Yes (Other)
  Sender: FDA-Public Use
  Company Number: US-TEVA-472862USA

PATIENT
  Sex: Female

DRUGS (3)
  1. NUVIGIL [Suspect]
     Indication: HYPERSOMNIA
     Dosage: REPORTED AS BOTH 200 MG AND 250 MG
     Dates: start: 2011, end: 201312
  2. IRON [Concomitant]
     Indication: NUTRITIONAL SUPPLEMENTATION
  3. MULTIVITAMINS [Concomitant]
     Indication: NUTRITIONAL SUPPLEMENTATION

REACTIONS (8)
  - Cutaneous lupus erythematosus [Unknown]
  - Headache [Recovered/Resolved]
  - Alopecia [Recovered/Resolved]
  - Alopecia [Recovered/Resolved]
  - Thyroid function test abnormal [Recovered/Resolved]
  - Scar [Recovered/Resolved]
  - Hair disorder [Recovered/Resolved]
  - Off label use [Unknown]
